APPROVED DRUG PRODUCT: GRIFULVIN V
Active Ingredient: GRISEOFULVIN, MICROCRYSTALLINE
Strength: 250MG
Dosage Form/Route: TABLET;ORAL
Application: A060618 | Product #002
Applicant: JOHNSON AND JOHNSON CONSUMER PRODUCTS INC
Approved: Approved Prior to Jan 1, 1982 | RLD: No | RS: No | Type: DISCN